FAERS Safety Report 14238252 (Version 1)
Quarter: 2017Q4

REPORT INFORMATION
  Report Type: Spontaneous
  Country: US (occurrence: None)
  Receive Date: 20171128
  Receipt Date: 20171128
  Transmission Date: 20180321
  Serious: No
  Sender: FDA-Public Use
  Company Number: None

PATIENT
  Age: 44 Year
  Sex: Female

DRUGS (1)
  1. CAPECITABINE TAB 500 MG BER [Suspect]
     Active Substance: CAPECITABINE
     Dosage: 1500MG BID 14 DAYS ORAL
     Route: 048

REACTIONS (3)
  - Vomiting [None]
  - Fatigue [None]
  - Nausea [None]

NARRATIVE: CASE EVENT DATE: 20170925
